FAERS Safety Report 6296862-6 (Version None)
Quarter: 2009Q3

REPORT INFORMATION
  Report Type: 
  Country: None (occurrence: None)
  Receive Date: 20090804
  Receipt Date: 20090730
  Transmission Date: 20100115
  Serious: Yes (Other)
  Sender: FDA-Public Use
  Company Number: US-TEVA-203710USA

PATIENT
  Age: 4 Year
  Sex: Male

DRUGS (2)
  1. PROGLYCEM SUSPENSION [Suspect]
     Indication: HYPERINSULINISM
     Route: 048
     Dates: start: 20090715
  2. HYDROCHLOROTHIAZIDE [Concomitant]

REACTIONS (2)
  - IDIOPATHIC THROMBOCYTOPENIC PURPURA [None]
  - PETECHIAE [None]
